FAERS Safety Report 8156238-3 (Version None)
Quarter: 2012Q1

REPORT INFORMATION
  Report Type: 
  Country: None (occurrence: None)
  Receive Date: 20120216
  Receipt Date: 20120203
  Transmission Date: 20120608
  Serious: Yes (Other)
  Sender: FDA-Public Use
  Company Number: FK201200337

PATIENT
  Age: 72 Year
  Sex: Male
  Weight: 101 kg

DRUGS (10)
  1. SIMVASTATIN [Concomitant]
  2. RITUXIMAB (RITUXIMAB) (RITUXIMAB) [Suspect]
     Indication: PRODUCT USED FOR UNKNOWN INDICATION
     Dosage: 1000 MG
     Dates: start: 20110721
  3. BENDROFLUMETHIAZIDE (BENDROFLUMETHIAZIDE) (BENDROFLUMETHIAZIDE) [Concomitant]
  4. PARACETAMOL (PARACETAMOL) ( PARACETAMOL) [Concomitant]
  5. RAMIPRIL [Concomitant]
  6. BRUFEN BRUFEN RETARD (IBUPROFEN) (IBUPROFEN) [Concomitant]
  7. HYDROXYCHLOROQUINE (HYDROXYCHLOROQUINE) (HYDROXYCHLOROQUINE) [Concomitant]
  8. METHOTREXATE [Suspect]
     Indication: PRODUCT USED FOR UNKNOWN INDICATION
     Dosage: 25 MG, 1 / 1WEEKS
  9. FOLIC ACID [Concomitant]
  10. LANSOPRAZOLE [Concomitant]

REACTIONS (1)
  - SQUAMOUS CELL CARCINOMA [None]
